FAERS Safety Report 4314293-2 (Version None)
Quarter: 2004Q1

REPORT INFORMATION
  Report Type: 
  Country: None (occurrence: None)
  Receive Date: 20040309
  Receipt Date: 20040128
  Transmission Date: 20041129
  Serious: Yes (Other)
  Sender: FDA-Public Use
  Company Number: WAES 0401USA02104

PATIENT
  Age: 51 Year
  Sex: Female

DRUGS (7)
  1. ALBUTEROL [Concomitant]
  2. XANAX [Concomitant]
  3. NEURONTIN [Concomitant]
  4. SINGULAIR [Suspect]
     Indication: EMPHYSEMA
     Route: 048
     Dates: start: 20030101
  5. PAXIL [Concomitant]
  6. SEROQUEL [Concomitant]
  7. ARTANE [Concomitant]

REACTIONS (5)
  - ADVERSE EVENT [None]
  - AMNESIA [None]
  - CARDIAC ARREST [None]
  - EAR PAIN [None]
  - PHARYNGITIS STREPTOCOCCAL [None]
